FAERS Safety Report 10261120 (Version 1)
Quarter: 2014Q2

REPORT INFORMATION
  Report Type: Spontaneous
  Country: US (occurrence: US)
  Receive Date: 20140626
  Receipt Date: 20140626
  Transmission Date: 20141212
  Serious: Yes (Death, Other)
  Sender: FDA-Public Use
  Company Number: US-JNJFOC-20140617338

PATIENT
  Sex: Female

DRUGS (3)
  1. IMBRUVICA [Suspect]
     Indication: CHRONIC LYMPHOCYTIC LEUKAEMIA
     Route: 048
  2. IMBRUVICA [Suspect]
     Indication: CHRONIC LYMPHOCYTIC LEUKAEMIA
     Route: 048
  3. GLEEVAC [Concomitant]

REACTIONS (3)
  - Multi-organ failure [Fatal]
  - Gastrointestinal stromal tumour [Unknown]
  - Prescribed underdose [Not Recovered/Not Resolved]
